FAERS Safety Report 9975888 (Version 1)
Quarter: 2014Q1

REPORT INFORMATION
  Report Type: Spontaneous
  Country: ES (occurrence: ES)
  Receive Date: 20140306
  Receipt Date: 20140306
  Transmission Date: 20141002
  Serious: Yes (Other)
  Sender: FDA-Public Use
  Company Number: ES-PFIZER INC-2014064463

PATIENT
  Age: 42 Year
  Sex: Male

DRUGS (1)
  1. DOSTINEX [Suspect]
     Dosage: 0.5 MG, 1X/DAY
     Route: 048
     Dates: start: 201401

REACTIONS (3)
  - Insomnia [Unknown]
  - Panic attack [Unknown]
  - Negative thoughts [Unknown]
